FAERS Safety Report 10168108 (Version 1)
Quarter: 2014Q2

REPORT INFORMATION
  Report Type: Spontaneous
  Country: US (occurrence: US)
  Receive Date: 20140512
  Receipt Date: 20140512
  Transmission Date: 20141212
  Serious: No
  Sender: FDA-Public Use
  Company Number: US-TEVA-477207USA

PATIENT
  Sex: Female

DRUGS (1)
  1. TRISENOX [Suspect]
     Indication: NEOPLASM MALIGNANT
     Dates: start: 20131017

REACTIONS (2)
  - Headache [Unknown]
  - Vomiting [Unknown]
